FAERS Safety Report 14034224 (Version 1)
Quarter: 2017Q4

REPORT INFORMATION
  Report Type: Spontaneous
  Country: US (occurrence: US)
  Receive Date: 20171003
  Receipt Date: 20171003
  Transmission Date: 20180321
  Serious: No
  Sender: FDA-Public Use
  Company Number: US-TEVA-779461ACC

PATIENT
  Sex: Female

DRUGS (2)
  1. CLONAZEPAM. [Suspect]
     Active Substance: CLONAZEPAM
     Dosage: .5 MILLIGRAM DAILY; ONCE IN THE MORNING AND ONCE AT NIGHT
  2. CLONAZEPAM. [Suspect]
     Active Substance: CLONAZEPAM
     Indication: INSOMNIA
     Dosage: .25 MILLIGRAM DAILY; NIGHTLY

REACTIONS (5)
  - Wrong technique in product usage process [Unknown]
  - Drug prescribing error [Unknown]
  - Panic attack [Unknown]
  - Drug ineffective for unapproved indication [Unknown]
  - Somnolence [Unknown]
